FAERS Safety Report 16534976 (Version 1)
Quarter: 2019Q3

REPORT INFORMATION
  Report Type: Spontaneous
  Country: US (occurrence: US)
  Receive Date: 20190705
  Receipt Date: 20190705
  Transmission Date: 20191004
  Serious: No
  Sender: FDA-Public Use
  Company Number: US-GW PHARMA-201904USGW1220

PATIENT

DRUGS (4)
  1. REVIA [Concomitant]
     Active Substance: NALTREXONE HYDROCHLORIDE
     Dosage: 25 MG
     Route: 065
  2. REVIA [Concomitant]
     Active Substance: NALTREXONE HYDROCHLORIDE
     Indication: PRODUCT USED FOR UNKNOWN INDICATION
     Dosage: 50 MG
     Route: 065
  3. EPIDIOLEX [Suspect]
     Active Substance: CANNABIDIOL
     Dosage: 420 MG DECREASED BY 100 MG EACH WEEK UNTIL HE WEANED HIMSELF OFF
     Route: 048
     Dates: start: 2019, end: 2019
  4. EPIDIOLEX [Suspect]
     Active Substance: CANNABIDIOL
     Indication: PRODUCT USED FOR UNKNOWN INDICATION
     Dosage: STARTING DOSE: 420 MG
     Route: 048
     Dates: start: 2019, end: 2019

REACTIONS (4)
  - Aggression [Recovering/Resolving]
  - Irritability [Recovering/Resolving]
  - Renal impairment [Unknown]
  - Lethargy [Recovering/Resolving]

NARRATIVE: CASE EVENT DATE: 2019
